FAERS Safety Report 7372292-0 (Version None)
Quarter: 2011Q1

REPORT INFORMATION
  Report Type: 
  Country: None (occurrence: None)
  Receive Date: 20110324
  Receipt Date: 20110317
  Transmission Date: 20110831
  Serious: Yes (Other)
  Sender: FDA-Public Use
  Company Number: A0919672A

PATIENT
  Sex: Female

DRUGS (2)
  1. XELODA [Suspect]
     Route: 065
  2. TYKERB [Suspect]
     Dosage: 1250MG PER DAY
     Route: 065
     Dates: start: 20101225

REACTIONS (6)
  - SKIN DISORDER [None]
  - EAR HAEMORRHAGE [None]
  - MOUTH HAEMORRHAGE [None]
  - HAEMORRHAGE [None]
  - ORAL PAIN [None]
  - DIARRHOEA [None]
